FAERS Safety Report 18402067 (Version 1)
Quarter: 2020Q4

REPORT INFORMATION
  Report Type: Spontaneous
  Country: US (occurrence: US)
  Receive Date: 20201019
  Receipt Date: 20201019
  Transmission Date: 20210114
  Serious: No
  Sender: FDA-Public Use
  Company Number: NVSC2019US089670

PATIENT
  Age: 22 Year
  Sex: Female

DRUGS (1)
  1. XIIDRA [Suspect]
     Active Substance: LIFITEGRAST
     Indication: DRY EYE
     Dosage: UNK (1 GTT DROPS, 2X/DAY:BID)
     Route: 047
     Dates: start: 201905

REACTIONS (1)
  - Maternal exposure during pregnancy [Unknown]
